FAERS Safety Report 18521206 (Version 5)
Quarter: 2021Q1

REPORT INFORMATION
  Report Type: Spontaneous
  Country: US (occurrence: US)
  Receive Date: 20201119
  Receipt Date: 20210308
  Transmission Date: 20210419
  Serious: Yes (Other)
  Sender: FDA-Public Use
  Company Number: US-PFIZER INC-2020455854

PATIENT
  Age: 60 Year
  Sex: Female

DRUGS (2)
  1. IBRANCE [Suspect]
     Active Substance: PALBOCICLIB
     Dosage: 125 MG, UNK
     Dates: start: 20201101
  2. IBRANCE [Suspect]
     Active Substance: PALBOCICLIB
     Dosage: 125 MG
     Dates: start: 20201017

REACTIONS (8)
  - Hyperglycaemia [Unknown]
  - Hypoglycaemia [Unknown]
  - Contusion [Unknown]
  - Peripheral swelling [Unknown]
  - Thrombocytopenia [Unknown]
  - Post procedural swelling [Unknown]
  - Skin discolouration [Unknown]
  - Lymphadenopathy [Unknown]
